FAERS Safety Report 4382575-4 (Version None)
Quarter: 2004Q2

REPORT INFORMATION
  Report Type: 
  Country: None (occurrence: None)
  Receive Date: 20040622
  Receipt Date: 20040501
  Transmission Date: 20050107
  Serious: Yes (Life-Threatening, Hospitalization)
  Sender: FDA-Public Use
  Company Number: MX-ROCHE-366203

PATIENT
  Age: 48 Year
  Sex: Male
  Weight: 81 kg

DRUGS (9)
  1. DACLIZUMAB [Suspect]
     Route: 042
     Dates: start: 20030623, end: 20030623
  2. DACLIZUMAB [Suspect]
     Route: 042
     Dates: end: 20030821
  3. MYCOPHENOLATE MOFETIL [Suspect]
     Route: 048
     Dates: start: 20030624
  4. CYCLOSPORINE [Suspect]
     Route: 048
     Dates: start: 20030624
  5. PREDNISONE [Suspect]
     Route: 065
     Dates: start: 20030624
  6. PRAVASTATIN [Concomitant]
     Route: 048
     Dates: start: 20040126
  7. AMLODIPINE [Concomitant]
     Route: 048
     Dates: start: 20030807
  8. LEVOTHYROXINE SODIUM [Concomitant]
     Route: 048
     Dates: start: 20040126
  9. INSULIN [Concomitant]
     Dosage: DOSING REPORTED AS 42 UI DAILY.
     Route: 058
     Dates: start: 20031010

REACTIONS (1)
  - TRANSITIONAL CELL CARCINOMA [None]
